FAERS Safety Report 9393994 (Version 1)
Quarter: 2013Q3

REPORT INFORMATION
  Report Type: Spontaneous
  Country: US (occurrence: US)
  Receive Date: 20130710
  Receipt Date: 20130710
  Transmission Date: 20140515
  Serious: Yes (Other)
  Sender: FDA-Public Use
  Company Number: CHPA2013US010891

PATIENT
  Age: 62 Year
  Sex: Female

DRUGS (1)
  1. VOLTAREN GEL [Suspect]
     Indication: CHONDROPATHY
     Dosage: UNK, QID
     Route: 061
     Dates: start: 201306, end: 20130707

REACTIONS (3)
  - Fungal infection [Recovering/Resolving]
  - Off label use [Unknown]
  - Wrong technique in drug usage process [Unknown]
